FAERS Safety Report 13388173 (Version 1)
Quarter: 2017Q1

REPORT INFORMATION
  Report Type: Spontaneous
  Country: US (occurrence: US)
  Receive Date: 20170330
  Receipt Date: 20170330
  Transmission Date: 20170429
  Serious: Yes (Other)
  Sender: FDA-Public Use
  Company Number: US-JNJFOC-20170320311

PATIENT
  Age: 6 Decade
  Sex: Male
  Weight: 81.65 kg

DRUGS (1)
  1. TYLENOL PM EXTRA STRENGTH [Suspect]
     Active Substance: ACETAMINOPHEN\DIPHENHYDRAMINE HYDROCHLORIDE
     Indication: SLEEP DISORDER
     Dosage: 2 TABLETS (UNIT UNSPECIFIED) AT BED TIME
     Route: 048

REACTIONS (2)
  - Product use issue [Unknown]
  - Coeliac disease [Not Recovered/Not Resolved]
